FAERS Safety Report 6210354-1 (Version None)
Quarter: 2009Q2

REPORT INFORMATION
  Report Type: 
  Country: None (occurrence: None)
  Receive Date: 20090529
  Receipt Date: 20090529
  Transmission Date: 20091009
  Serious: No
  Sender: FDA-Public Use
  Company Number: None

PATIENT
  Age: 54 Year
  Sex: Female
  Weight: 68 kg

DRUGS (1)
  1. DILAUDID [Suspect]
     Indication: HEADACHE
     Dosage: DILAUDID 2 MG X 1 IV BOLUS
     Route: 040
     Dates: start: 20081221, end: 20081221

REACTIONS (3)
  - ALCOHOL POISONING [None]
  - RESPIRATORY ARREST [None]
  - UNRESPONSIVE TO STIMULI [None]
